FAERS Safety Report 21067171 (Version 2)
Quarter: 2024Q2

REPORT INFORMATION
  Report Type: Spontaneous
  Country: US (occurrence: US)
  Receive Date: 20220712
  Receipt Date: 20240425
  Transmission Date: 20240716
  Serious: No
  Sender: FDA-Public Use
  Company Number: US-CIPLA LTD.-2022US03645

PATIENT

DRUGS (2)
  1. ALBUTEROL [Suspect]
     Active Substance: ALBUTEROL
     Indication: Product used for unknown indication
     Dosage: 0.09 MILLIGRAM (1 PUFF), UNK
     Dates: start: 20220601
  2. ALBUTEROL [Suspect]
     Active Substance: ALBUTEROL
     Dosage: 0.18 MILLIGRAM (1 PUFF), UNK
     Dates: start: 20220602

REACTIONS (4)
  - COVID-19 [Unknown]
  - Illness [Unknown]
  - Device delivery system issue [Unknown]
  - Device malfunction [Unknown]

NARRATIVE: CASE EVENT DATE: 20220601
